FAERS Safety Report 5567172-7 (Version None)
Quarter: 2007Q4

REPORT INFORMATION
  Report Type: 
  Country: None (occurrence: None)
  Receive Date: 20071219
  Receipt Date: 20071213
  Transmission Date: 20080405
  Serious: Yes (Hospitalization)
  Sender: FDA-Public Use
  Company Number: US-ELI_LILLY_AND_COMPANY-US200711004442

PATIENT
  Sex: Male

DRUGS (19)
  1. HUMALOG [Suspect]
     Dosage: SLIDING SCALE
     Dates: start: 20020101
  2. HUMALOG [Suspect]
     Dosage: UNK, UNK
  3. COUMADIN [Concomitant]
  4. LASIX [Concomitant]
     Dosage: 80 MG, 2/D
  5. LANTUS [Concomitant]
     Dates: start: 20050120
  6. K-DUR 10 [Concomitant]
     Dosage: UNK, UNK
     Dates: start: 20070626
  7. COLCHICINE [Concomitant]
     Dosage: 0.6 MG, UNK
  8. ALLEGRA [Concomitant]
  9. PRINIVIL [Concomitant]
     Dosage: 5 MG, DAILY (1/D)
  10. HYDROCHLOROTHIAZIDE [Concomitant]
     Dosage: 25 UNK, QOD
  11. COREG [Concomitant]
     Dosage: 12.5 MG, 2/D
  12. SYNTHROID [Concomitant]
     Dates: start: 20001205
  13. INSPRA [Concomitant]
     Dosage: 50 MG, DAILY (1/D)
  14. ATORVASTATIN [Concomitant]
     Dosage: 80 MG, DAILY (1/D)
  15. TOPICORT [Concomitant]
     Dosage: UNK, 2/D
     Route: 061
  16. NITROSTAT [Concomitant]
     Dosage: UNK, AS NEEDED
     Route: 060
     Dates: start: 20020801
  17. DIGOXIN [Concomitant]
     Dosage: 0.125 MG, DAILY (1/D)
  18. NIACIN [Concomitant]
  19. ASPIRIN [Concomitant]
     Dosage: 81 MG, DAILY (1/D)

REACTIONS (14)
  - ASTHENIA [None]
  - BLOOD CREATININE INCREASED [None]
  - CARDIAC FIBRILLATION [None]
  - CHOLELITHIASIS [None]
  - GAIT DISTURBANCE [None]
  - HIGH DENSITY LIPOPROTEIN DECREASED [None]
  - HYPOGONADISM [None]
  - MACULAR DEGENERATION [None]
  - MICROALBUMINURIA [None]
  - MOVEMENT DISORDER [None]
  - PERONEAL NERVE PALSY [None]
  - THROMBOCYTOPENIA [None]
  - TONSILLECTOMY [None]
  - TRANSIENT ISCHAEMIC ATTACK [None]
